FAERS Safety Report 4445001-2 (Version None)
Quarter: 2004Q3

REPORT INFORMATION
  Report Type: 
  Country: None (occurrence: None)
  Receive Date: 20040907
  Receipt Date: 20040823
  Transmission Date: 20050211
  Serious: Yes (Death)
  Sender: FDA-Public Use
  Company Number: 2004AP01583

PATIENT
  Age: 60 Year
  Sex: Male

DRUGS (7)
  1. ANAPEINE [Suspect]
     Indication: EPIDURAL ANAESTHESIA
     Dosage: 285 MG DAILY ED
     Route: 008
     Dates: start: 20040310
  2. CEFMETAZOLE SODIUM [Concomitant]
  3. PROPOFOL [Concomitant]
  4. KETALAR [Concomitant]
  5. FENTANYL [Concomitant]
  6. MORPHINE HYDROCHLORIDE [Concomitant]
  7. EPHEDRINE SUL CAP [Concomitant]

REACTIONS (6)
  - ASCITES [None]
  - OPERATIVE HAEMORRHAGE [None]
  - POST PROCEDURAL COMPLICATION [None]
  - THERAPY NON-RESPONDER [None]
  - VENTRICULAR FIBRILLATION [None]
  - VENTRICULAR TACHYCARDIA [None]
